FAERS Safety Report 24987589 (Version 1)
Quarter: 2025Q1

REPORT INFORMATION
  Report Type: Spontaneous
  Country: GB (occurrence: GB)
  Receive Date: 20250219
  Receipt Date: 20250219
  Transmission Date: 20250408
  Serious: Yes (Life-Threatening, Disabling, Other)
  Sender: PFIZER
  Company Number: None

PATIENT
  Age: 71 Year
  Sex: Male

DRUGS (1)
  1. VARENICLINE TARTRATE [Suspect]
     Active Substance: VARENICLINE TARTRATE
     Indication: Ex-tobacco user
     Dates: start: 20250120, end: 20250218

REACTIONS (4)
  - Cardiac arrest [Unknown]
  - Seizure [Unknown]
  - Behaviour disorder [Unknown]
  - Confusional state [Unknown]

NARRATIVE: CASE EVENT DATE: 20250217
